FAERS Safety Report 9981999 (Version 2)
Quarter: 2014Q1

REPORT INFORMATION
  Report Type: Report from Study
  Country: US (occurrence: US)
  Receive Date: 20140307
  Receipt Date: 20140307
  Transmission Date: 20141002
  Serious: Yes (Hospitalization)
  Sender: FDA-Public Use
  Company Number: US-ABBVIE-13P-163-1172834-00

PATIENT
  Age: 19 Year
  Sex: Male

DRUGS (10)
  1. HUMIRA [Suspect]
     Indication: CROHN^S DISEASE
     Dates: start: 20131008, end: 20131008
  2. HUMIRA [Suspect]
     Dates: start: 20131022, end: 20131022
  3. HUMIRA [Suspect]
  4. ZOFRAN [Concomitant]
     Indication: NAUSEA
     Dosage: DURING THE DAY
  5. ZOFRAN [Concomitant]
     Indication: VOMITING
  6. PHENERGAN [Concomitant]
     Indication: NAUSEA
     Dosage: 25-50 MG AT NIGHT
  7. LORAZEPAM [Concomitant]
     Indication: ANXIETY
  8. ANTIBIOTICS [Concomitant]
     Indication: LYME DISEASE
  9. MORPHINE [Concomitant]
  10. MARINOL [Concomitant]
     Indication: DECREASED APPETITE

REACTIONS (8)
  - Pyrexia [Not Recovered/Not Resolved]
  - Vomiting [Not Recovered/Not Resolved]
  - Nausea [Not Recovered/Not Resolved]
  - Abdominal pain [Not Recovered/Not Resolved]
  - Headache [Not Recovered/Not Resolved]
  - Clostridium difficile infection [Recovered/Resolved]
  - Bronchitis [Not Recovered/Not Resolved]
  - Crohn^s disease [Unknown]
